FAERS Safety Report 12563674 (Version 5)
Quarter: 2016Q4

REPORT INFORMATION
  Report Type: Report from Study
  Country: CA (occurrence: CA)
  Receive Date: 20160715
  Receipt Date: 20161012
  Transmission Date: 20170207
  Serious: Yes (Hospitalization, Other)
  Sender: FDA-Public Use
  Company Number: CA-TAKEDA-2016TUS011882

PATIENT
  Age: 54 Year
  Sex: Male

DRUGS (1)
  1. VEDOLIZUMAB [Suspect]
     Active Substance: VEDOLIZUMAB
     Indication: COLITIS ULCERATIVE
     Dosage: 300 MG, UNK
     Route: 042
     Dates: start: 20160203

REACTIONS (9)
  - Abdominal discomfort [Unknown]
  - Pain [Unknown]
  - Arthralgia [Unknown]
  - Anal abscess [Unknown]
  - Myalgia [Unknown]
  - Pyrexia [Unknown]
  - Fatigue [Unknown]
  - Loss of consciousness [Unknown]
  - Secretion discharge [Unknown]

NARRATIVE: CASE EVENT DATE: 20160627
